FAERS Safety Report 7380490 (Version 4)
Quarter: 2018Q3

REPORT INFORMATION
  Report Type: Spontaneous
  Country: DE (occurrence: DE)
  Receive Date: 20100507
  Receipt Date: 20180822
  Transmission Date: 20181010
  Serious: Yes (Death, Hospitalization)
  Sender: FDA-Public Use
  Company Number: DE-JNJFOC-20100501036

PATIENT
  Age: 70 Year
  Sex: Male
  Weight: 82 kg

DRUGS (18)
  1. TRYASOL CODEIN [Suspect]
     Active Substance: CODEINE PHOSPHATE
     Indication: BRONCHIAL CARCINOMA
     Route: 048
     Dates: start: 201001, end: 20100311
  2. BONDIOL [Concomitant]
     Active Substance: ALFACALCIDOL
     Indication: CHRONIC KIDNEY DISEASE-MINERAL AND BONE DISORDER
     Route: 048
     Dates: start: 2008
  3. L?THYROX [Concomitant]
     Active Substance: LEVOTHYROXINE SODIUM
     Indication: HYPOTHYROIDISM
     Route: 048
  4. BISOPROLOL [Concomitant]
     Active Substance: BISOPROLOL
     Indication: CORONARY ARTERY DISEASE
     Route: 048
     Dates: start: 1998
  5. PANTOPRAZOL [Concomitant]
     Active Substance: PANTOPRAZOLE SODIUM
     Indication: PROPHYLAXIS AGAINST GASTROINTESTINAL ULCER
     Route: 048
     Dates: start: 1998
  6. TORASEMID [Concomitant]
     Active Substance: TORSEMIDE
     Indication: HYPERTENSION
     Route: 048
     Dates: start: 2000
  7. DICLOFENAC [Concomitant]
     Active Substance: DICLOFENAC
     Indication: OSTEOARTHRITIS
     Route: 048
  8. ALLOPURINOL. [Concomitant]
     Active Substance: ALLOPURINOL
     Indication: RENAL IMPAIRMENT
     Route: 048
     Dates: start: 2008
  9. DEXAMETHASONE. [Concomitant]
     Active Substance: DEXAMETHASONE
     Indication: BRONCHIAL CARCINOMA
     Route: 048
     Dates: start: 2009
  10. NOVAMINSULFON [Concomitant]
     Active Substance: METAMIZOLE
     Indication: PAIN
     Route: 048
     Dates: start: 2009
  11. ASPIRIN. [Concomitant]
     Active Substance: ASPIRIN
     Indication: CORONARY ARTERY DISEASE
     Route: 048
     Dates: start: 1998
  12. FENTANYL. [Suspect]
     Active Substance: FENTANYL
     Indication: PAIN
     Route: 062
     Dates: start: 200912, end: 20100311
  13. ATACAND [Concomitant]
     Active Substance: CANDESARTAN CILEXETIL
     Indication: CARDIAC FAILURE CHRONIC
     Route: 048
     Dates: start: 2008
  14. LOCOL (FLUVASTATIN SODIUM) [Concomitant]
     Active Substance: FLUVASTATIN SODIUM
     Indication: HYPERLIPIDAEMIA
     Route: 048
     Dates: start: 1998
  15. ACC [Concomitant]
     Active Substance: ACETYLCYSTEINE
     Indication: BRONCHIAL CARCINOMA
     Route: 048
     Dates: start: 2009
  16. NITRO SPRAY [Concomitant]
     Indication: CORONARY ARTERY DISEASE
     Route: 048
     Dates: start: 1998
  17. NEORECORMON [Concomitant]
     Active Substance: ERYTHROPOIETIN
     Indication: NEPHROGENIC ANAEMIA
     Route: 058
     Dates: start: 2008
  18. SEVREDOL [Suspect]
     Active Substance: MORPHINE
     Indication: PAIN
     Route: 048
     Dates: start: 201001, end: 20100311

REACTIONS (8)
  - Somnolence [Unknown]
  - Overdose [Unknown]
  - Death [Fatal]
  - General physical health deterioration [Unknown]
  - Acute kidney injury [Unknown]
  - Pneumonia [Unknown]
  - Miosis [Unknown]
  - Urinary retention [Unknown]

NARRATIVE: CASE EVENT DATE: 20100310
